FAERS Safety Report 6662917-7 (Version None)
Quarter: 2010Q1

REPORT INFORMATION
  Report Type: 
  Country: None (occurrence: None)
  Receive Date: 20100323
  Receipt Date: 20100222
  Transmission Date: 20100710
  Serious: Yes (Hospitalization)
  Sender: FDA-Public Use
  Company Number: US-000038

PATIENT
  Sex: Female

DRUGS (1)
  1. ZENPEP [Suspect]
     Indication: CYSTIC FIBROSIS
     Dosage: 5000 USP UNITS WITH FOODS ORAL
     Route: 048
     Dates: start: 20091216

REACTIONS (2)
  - FAILURE TO THRIVE [None]
  - FREQUENT BOWEL MOVEMENTS [None]
